FAERS Safety Report 6957609-0 (Version None)
Quarter: 2010Q3

REPORT INFORMATION
  Report Type: 
  Country: None (occurrence: None)
  Receive Date: 20100831
  Receipt Date: 20100825
  Transmission Date: 20110219
  Serious: Yes (Death)
  Sender: FDA-Public Use
  Company Number: PHHY2010JP56372

PATIENT
  Sex: Male

DRUGS (1)
  1. TEGRETOL [Suspect]
     Dosage: UNK

REACTIONS (5)
  - DRUG LEVEL INCREASED [None]
  - DRUG TOXICITY [None]
  - HEAT ILLNESS [None]
  - HEAT STROKE [None]
  - MYOCARDIAL INFARCTION [None]
